FAERS Safety Report 4369073-9 (Version None)
Quarter: 2004Q2

REPORT INFORMATION
  Report Type: 
  Country: None (occurrence: None)
  Receive Date: 20040527
  Receipt Date: 20040511
  Transmission Date: 20050107
  Serious: Yes (Hospitalization)
  Sender: FDA-Public Use
  Company Number: 196184

PATIENT
  Age: 46 Year
  Sex: Male

DRUGS (5)
  1. AVONEX [Suspect]
     Indication: MULTIPLE SCLEROSIS
     Dosage: 30 MCG QW IM
     Route: 030
     Dates: start: 19970201
  2. ZANAFLEX [Concomitant]
  3. DETROL [Concomitant]
  4. CYLERT [Concomitant]
  5. MITOXANTRONE [Concomitant]

REACTIONS (3)
  - ATAXIA [None]
  - FALL [None]
  - MULTIPLE SCLEROSIS RELAPSE [None]
